FAERS Safety Report 24051876 (Version 1)
Quarter: 2024Q3

REPORT INFORMATION
  Report Type: Spontaneous
  Country: CA (occurrence: CA)
  Receive Date: 20240704
  Receipt Date: 20240704
  Transmission Date: 20241016
  Serious: Yes (Death)
  Sender: TAIHO ONCOLOGY INC
  Company Number: CA-TAIHOP-2024-006559

PATIENT
  Age: 52 Year
  Sex: Male

DRUGS (1)
  1. LONSURF [Suspect]
     Active Substance: TIPIRACIL HYDROCHLORIDE\TRIFLURIDINE
     Indication: Colorectal cancer metastatic
     Dosage: CYCLE AND FORM STRENGTH UNKNOWN
     Route: 048
     Dates: start: 20240424

REACTIONS (2)
  - Death [Fatal]
  - Overdose [Unknown]
